FAERS Safety Report 4888490-1 (Version None)
Quarter: 2005Q4

REPORT INFORMATION
  Report Type: 
  Country: None (occurrence: None)
  Receive Date: 20051207
  Receipt Date: 20050610
  Transmission Date: 20060501
  Serious: Yes (Other)
  Sender: FDA-Public Use
  Company Number: 2005087278

PATIENT
  Age: 61 Year
  Sex: Male
  Weight: 95.2554 kg

DRUGS (3)
  1. VIAGRA [Suspect]
     Indication: ERECTILE DYSFUNCTION
     Dosage: UNKNOWN (100 MG, UNKNOWN), ORAL
     Route: 048
     Dates: start: 20030301
  2. LEVITRA [Suspect]
     Indication: ERECTILE DYSFUNCTION
     Dosage: 10 MG (10 MG, AS NECESSARY), ORAL
     Route: 048
     Dates: start: 20041001
  3. NEXIUM [Concomitant]

REACTIONS (3)
  - ASTHMA [None]
  - HEADACHE [None]
  - NASAL CONGESTION [None]
